FAERS Safety Report 25395153 (Version 2)
Quarter: 2025Q2

REPORT INFORMATION
  Report Type: Spontaneous
  Country: US (occurrence: US)
  Receive Date: 20250604
  Receipt Date: 20250609
  Transmission Date: 20250717
  Serious: Yes (Other)
  Sender: ABBVIE
  Company Number: US-ABBVIE-6305129

PATIENT
  Age: 76 Year

DRUGS (3)
  1. SYNTHROID [Suspect]
     Active Substance: LEVOTHYROXINE SODIUM
     Indication: Hypothyroidism
     Route: 048
  2. SYNTHROID [Suspect]
     Active Substance: LEVOTHYROXINE SODIUM
     Indication: Hypothyroidism
     Route: 048
  3. LEVOTHYROXINE [Suspect]
     Active Substance: LEVOTHYROXINE
     Indication: Hyperthyroidism
     Route: 048

REACTIONS (6)
  - Oral surgery [Unknown]
  - Graves^ disease [Recovering/Resolving]
  - Thyroid hormones increased [Unknown]
  - Thyroid hormones decreased [Unknown]
  - Product colour issue [Unknown]
  - Full blood count increased [Recovering/Resolving]

NARRATIVE: CASE EVENT DATE: 20250101
